FAERS Safety Report 21238850 (Version 2)
Quarter: 2023Q1

REPORT INFORMATION
  Report Type: Spontaneous
  Country: US (occurrence: US)
  Receive Date: 20220822
  Receipt Date: 20230221
  Transmission Date: 20230418
  Serious: Yes (Hospitalization, Other)
  Sender: FDA-Public Use
  Company Number: US-PFIZER INC-PV202200047488

PATIENT
  Age: 72 Year
  Sex: Female
  Weight: 98.88 kg

DRUGS (7)
  1. IBRANCE [Suspect]
     Active Substance: PALBOCICLIB
     Indication: Breast cancer metastatic
     Dosage: 75 MG
  2. IBRANCE [Suspect]
     Active Substance: PALBOCICLIB
     Dosage: 75 MG, CYCLIC (ONE TABLET DAILY BY MOUTH FOR 3 WEEKS AND THEN OFF FOR 1 WEEK)
     Route: 048
     Dates: start: 202203, end: 20230130
  3. XGEVA [Concomitant]
     Active Substance: DENOSUMAB
     Indication: Bone disorder
     Dosage: UNK, CYCLIC (UNKNOWN DOSE INJECTED EVERY 28 DAYS)
     Dates: start: 202202
  4. CALCIUM CARBONATE [Concomitant]
     Active Substance: CALCIUM CARBONATE
     Indication: Hypoparathyroidism
     Dosage: 3750 MG, DAILY
     Dates: start: 2006
  5. CALCIUM CARBONATE [Concomitant]
     Active Substance: CALCIUM CARBONATE
     Dosage: UNK (MASSIVE DOSES STARTED FEB2022)
     Dates: start: 2022
  6. VITAMIN D3 [Concomitant]
     Active Substance: CHOLECALCIFEROL
     Indication: Hypoparathyroidism
     Dosage: 50000 IU, WEEKLY (50,000 IU ONCE WEEKLY PILL)
     Dates: start: 2006
  7. CALCITRIOL [Concomitant]
     Active Substance: CALCITRIOL
     Indication: Hypoparathyroidism
     Dosage: 25 UG, 1X/DAY
     Route: 048
     Dates: start: 202202

REACTIONS (5)
  - Nephrolithiasis [Not Recovered/Not Resolved]
  - Neutropenia [Unknown]
  - Weight decreased [Unknown]
  - Pain [Unknown]
  - Bladder spasm [Unknown]

NARRATIVE: CASE EVENT DATE: 20220301
